FAERS Safety Report 7820790-5 (Version None)
Quarter: 2011Q4

REPORT INFORMATION
  Report Type: 
  Country: None (occurrence: None)
  Receive Date: 20111018
  Receipt Date: 20111011
  Transmission Date: 20120403
  Serious: Yes (Other)
  Sender: FDA-Public Use
  Company Number: IE-MERCK-1110GBR00051

PATIENT
  Age: 10 Year
  Sex: Male

DRUGS (4)
  1. ALBUTEROL SULFATE [Concomitant]
     Route: 065
  2. BECLOMETHASONE DIPROPIONATE [Concomitant]
     Indication: ASTHMA
     Route: 065
     Dates: start: 20051224, end: 20110926
  3. SINGULAIR [Suspect]
     Indication: ASTHMA
     Route: 048
     Dates: start: 20110825, end: 20110926
  4. ALBUTEROL [Concomitant]
     Indication: ASTHMA
     Route: 065
     Dates: start: 20031224, end: 20110926

REACTIONS (3)
  - OFF LABEL USE [None]
  - DEPRESSION [None]
  - SLEEP DISORDER [None]
